FAERS Safety Report 10667528 (Version 3)
Quarter: 2015Q1

REPORT INFORMATION
  Report Type: Spontaneous
  Country: JP (occurrence: JP)
  Receive Date: 20141222
  Receipt Date: 20150302
  Transmission Date: 20150720
  Serious: Yes (Death, Hospitalization)
  Sender: FDA-Public Use
  Company Number: JP-BAYER-2014-186911

PATIENT
  Age: 77 Year
  Sex: Female
  Weight: 54 kg

DRUGS (10)
  1. STIVARGA [Suspect]
     Active Substance: REGORAFENIB
     Indication: COLON CANCER
     Dosage: 160 MG, QD (FOR 3 WEEKS AND OFF FOR 1 WEEK)
     Route: 048
     Dates: start: 20141127, end: 20141214
  2. MIYA-BM [Concomitant]
     Active Substance: CLOSTRIDIUM BUTYRICUM SPORES STRAIN M-55
     Dosage: DAILY DOSE 3 DF
     Route: 048
     Dates: start: 20140708, end: 20141128
  3. OXYCONTIN [Concomitant]
     Active Substance: OXYCODONE HYDROCHLORIDE
     Indication: COLON CANCER
     Dosage: DAILY DOSE 40 MG
     Route: 048
     Dates: start: 20140708, end: 20141224
  4. NEXIUM [Concomitant]
     Active Substance: ESOMEPRAZOLE MAGNESIUM
     Indication: PROPHYLAXIS
     Dosage: DAILY DOSE 10 MG
     Route: 048
     Dates: start: 20131027, end: 20141224
  5. LOXOPROFEN [Concomitant]
     Active Substance: LOXOPROFEN
     Indication: COLON CANCER
     Dosage: DAILY DOSE 120 MG
     Route: 048
     Dates: start: 20140812, end: 20141224
  6. WARFARIN [Concomitant]
     Active Substance: WARFARIN
     Dosage: DAILY DOSE 3 MG
     Route: 048
     Dates: start: 20141216, end: 20141217
  7. MAGMITT [Concomitant]
     Active Substance: MAGNESIUM OXIDE
     Dosage: DAILY DOSE 1980 MG
     Route: 048
     Dates: start: 20131119, end: 20141224
  8. REBAMIPIDE [Concomitant]
     Active Substance: REBAMIPIDE
     Dosage: DAILY DOSE 200 MG
     Route: 048
     Dates: start: 20140812, end: 20141224
  9. WARFARIN [Concomitant]
     Active Substance: WARFARIN
     Dosage: DAILY DOSE 5 MG
     Route: 048
     Dates: start: 20141215, end: 20141215
  10. BETAMETHASONE [Concomitant]
     Active Substance: BETAMETHASONE
     Indication: COLON CANCER
     Dosage: DAILY DOSE 1 MG
     Route: 048
     Dates: start: 20141124, end: 20141224

REACTIONS (6)
  - Anastomotic haemorrhage [Fatal]
  - Colon cancer [Fatal]
  - Pulmonary thrombosis [Not Recovered/Not Resolved]
  - Tumour haemorrhage [Fatal]
  - Deep vein thrombosis [Not Recovered/Not Resolved]
  - Shock haemorrhagic [Fatal]

NARRATIVE: CASE EVENT DATE: 20141213
